FAERS Safety Report 14679012 (Version 2)
Quarter: 2018Q2

REPORT INFORMATION
  Report Type: Spontaneous
  Country: DE (occurrence: DE)
  Receive Date: 20180326
  Receipt Date: 20180508
  Transmission Date: 20180711
  Serious: Yes (Other)
  Sender: FDA-Public Use
  Company Number: PHHY2017DE085024

PATIENT
  Age: 70 Year
  Sex: Female
  Weight: 75 kg

DRUGS (1)
  1. REVOLADE [Suspect]
     Active Substance: ELTROMBOPAG
     Indication: IMMUNE THROMBOCYTOPENIC PURPURA
     Dosage: UNK
     Route: 065
     Dates: start: 201210, end: 201706

REACTIONS (7)
  - Chronic myeloid leukaemia [Recovering/Resolving]
  - White blood cell count increased [Recovering/Resolving]
  - Hepatomegaly [Unknown]
  - Leukocytosis [Recovering/Resolving]
  - Granulocytosis [Unknown]
  - Splenomegaly [Unknown]
  - Nausea [Recovered/Resolved]

NARRATIVE: CASE EVENT DATE: 201706
